FAERS Safety Report 8885830 (Version 1)
Quarter: 2012Q4

REPORT INFORMATION
  Report Type: 
  Country: US (occurrence: US)
  Receive Date: 20121101
  Receipt Date: 20121101
  Transmission Date: 20130627
  Serious: Yes (Hospitalization, Other)
  Sender: FDA-Public Use
  Company Number: US-TEVA-367874USA

PATIENT
  Sex: Female

DRUGS (2)
  1. TREANDA [Suspect]
  2. RITUXIMAB [Suspect]

REACTIONS (2)
  - Pancytopenia [Unknown]
  - Urosepsis [Unknown]
